FAERS Safety Report 7539870-7 (Version None)
Quarter: 2011Q2

REPORT INFORMATION
  Report Type: 
  Country: None (occurrence: None)
  Receive Date: 20110610
  Receipt Date: 20110531
  Transmission Date: 20111010
  Serious: Yes (Hospitalization)
  Sender: FDA-Public Use
  Company Number: JP-ELI_LILLY_AND_COMPANY-JP201103000009

PATIENT
  Sex: Male

DRUGS (7)
  1. DULOXETINE HYDROCHLORIDE [Suspect]
     Indication: DEPRESSION
     Dosage: 20 MG, DAILY (1/D)
     Route: 048
     Dates: start: 20100908, end: 20100914
  2. DULOXETINE HYDROCHLORIDE [Suspect]
     Dosage: 40 MG, DAILY (1/D)
     Route: 048
     Dates: start: 20100915, end: 20101110
  3. GANATON [Concomitant]
     Indication: GASTRITIS
     Dosage: 150 MG, DAILY (1/D)
  4. BIO-THREE [Concomitant]
     Indication: CONSTIPATION
     Dosage: 3 MG, DAILY (1/D)
     Dates: end: 20101005
  5. LORAZEPAM [Concomitant]
     Dosage: 1 MG, DAILY (1/D)
     Dates: end: 20101103
  6. DULOXETINE HYDROCHLORIDE [Suspect]
     Dosage: 20 MG, DAILY (1/D)
     Route: 048
     Dates: start: 20101111, end: 20101116
  7. EURODIN [Concomitant]
     Indication: INSOMNIA
     Dosage: 2 MG, DAILY (1/D)
     Dates: start: 20100922, end: 20101005

REACTIONS (1)
  - ACTIVATION SYNDROME [None]
